FAERS Safety Report 18950418 (Version 3)
Quarter: 2022Q1

REPORT INFORMATION
  Report Type: Spontaneous
  Country: US (occurrence: None)
  Receive Date: 20210228
  Receipt Date: 20220316
  Transmission Date: 20220423
  Serious: No
  Sender: FDA-Public Use
  Company Number: US-ROCHE-2740407

PATIENT
  Sex: Male

DRUGS (2)
  1. XOLAIR [Suspect]
     Active Substance: OMALIZUMAB
     Indication: Asthma
     Route: 065
     Dates: start: 20200823
  2. PREDNISONE [Concomitant]
     Active Substance: PREDNISONE
     Dates: end: 202011

REACTIONS (1)
  - Eosinophil count increased [Unknown]
